FAERS Safety Report 10206344 (Version 15)
Quarter: 2015Q3

REPORT INFORMATION
  Report Type: Report from Study
  Country: CA (occurrence: CA)
  Receive Date: 20140530
  Receipt Date: 20150716
  Transmission Date: 20151125
  Serious: Yes (Hospitalization, Other)
  Sender: FDA-Public Use
  Company Number: PHHY2014CA053290

PATIENT
  Sex: Male

DRUGS (2)
  1. SANDOSTATIN [Suspect]
     Active Substance: OCTREOTIDE ACETATE
     Indication: NEUROENDOCRINE TUMOUR
     Dosage: 75 UG, TID
     Route: 058
     Dates: start: 20140331
  2. SANDOSTATIN LAR DEPOT [Suspect]
     Active Substance: OCTREOTIDE ACETATE
     Indication: NEUROENDOCRINE TUMOUR
     Dosage: 20 MG, QMO
     Route: 030
     Dates: start: 20140331

REACTIONS (20)
  - Decreased appetite [Unknown]
  - Blood pressure increased [Unknown]
  - Nausea [Unknown]
  - Clostridium difficile infection [Not Recovered/Not Resolved]
  - Vomiting [Unknown]
  - Blood magnesium decreased [Not Recovered/Not Resolved]
  - Renal impairment [Unknown]
  - Malignant neoplasm progression [Unknown]
  - Urinary tract infection [Unknown]
  - Blood urine present [Recovered/Resolved]
  - Weight increased [Unknown]
  - Injection site pain [Unknown]
  - Dizziness [Recovering/Resolving]
  - Blood electrolytes decreased [Unknown]
  - Asthenia [Unknown]
  - Renal pain [Unknown]
  - Heart rate decreased [Unknown]
  - Myalgia [Unknown]
  - Diarrhoea [Recovering/Resolving]
  - Headache [Recovered/Resolved]

NARRATIVE: CASE EVENT DATE: 2014
